FAERS Safety Report 7353924-X (Version None)
Quarter: 2011Q1

REPORT INFORMATION
  Report Type: 
  Country: None (occurrence: None)
  Receive Date: 20110315
  Receipt Date: 20110301
  Transmission Date: 20110831
  Serious: Yes (Other)
  Sender: FDA-Public Use
  Company Number: PHHY2010BR60303

PATIENT
  Sex: Female

DRUGS (1)
  1. DIOVAN AMLO FIX [Suspect]
     Dosage: UNK

REACTIONS (2)
  - BLOOD PRESSURE DECREASED [None]
  - BLOOD PRESSURE INCREASED [None]
